FAERS Safety Report 20793900 (Version 2)
Quarter: 2022Q2

REPORT INFORMATION
  Report Type: Spontaneous
  Country: SG (occurrence: None)
  Receive Date: 20220506
  Receipt Date: 20220512
  Transmission Date: 20220721
  Serious: Yes (Death, Other)
  Sender: FDA-Public Use
  Company Number: SG-ROCHE-3085523

PATIENT
  Age: 57 Year
  Sex: Male

DRUGS (1)
  1. AVASTIN [Suspect]
     Active Substance: BEVACIZUMAB
     Indication: Colorectal cancer
     Route: 065

REACTIONS (13)
  - Death [Fatal]
  - Drug ineffective [Unknown]
  - Metastases to liver [Unknown]
  - Decreased appetite [Unknown]
  - Weight decreased [Unknown]
  - Oncologic complication [Unknown]
  - COVID-19 [Unknown]
  - Investigation abnormal [Unknown]
  - Asthenia [Unknown]
  - Asthenia [Unknown]
  - Dyspnoea [Unknown]
  - General physical health deterioration [Unknown]
  - Blood pressure decreased [Unknown]
